FAERS Safety Report 20834402 (Version 2)
Quarter: 2022Q2

REPORT INFORMATION
  Report Type: Spontaneous
  Country: AU (occurrence: AU)
  Receive Date: 20220516
  Receipt Date: 20220607
  Transmission Date: 20220721
  Serious: Yes (Other)
  Sender: FDA-Public Use
  Company Number: AU-BAYER-2022A065693

PATIENT
  Age: 32 Year
  Sex: Female

DRUGS (1)
  1. KYLEENA [Suspect]
     Active Substance: LEVONORGESTREL
     Indication: Contraception
     Dosage: 17.5?G/DAY
     Route: 015
     Dates: start: 20211126, end: 20220108

REACTIONS (6)
  - Anxiety [None]
  - Personality change [None]
  - Self-injurious ideation [Recovering/Resolving]
  - Negative thoughts [Recovering/Resolving]
  - Anxiety [Recovering/Resolving]
  - Emotional distress [None]

NARRATIVE: CASE EVENT DATE: 20211201
